FAERS Safety Report 8845914 (Version 1)
Quarter: 2012Q4

REPORT INFORMATION
  Report Type: 
  Country: US (occurrence: US)
  Receive Date: 20121017
  Receipt Date: 20121017
  Transmission Date: 20130627
  Serious: Yes (Other)
  Sender: FDA-Public Use
  Company Number: US-ROCHE-1130431

PATIENT
  Sex: Male

DRUGS (2)
  1. NUTROPIN AQ [Suspect]
     Indication: HYPOPITUITARISM
     Route: 058
  2. NUTROPIN AQ [Suspect]
     Indication: HYPOPITUITARISM

REACTIONS (4)
  - Swelling [Unknown]
  - Pain [Unknown]
  - Asthenia [Unknown]
  - Pituitary tumour [Unknown]
